FAERS Safety Report 6264411-4 (Version None)
Quarter: 2009Q3

REPORT INFORMATION
  Report Type: 
  Country: None (occurrence: None)
  Receive Date: 20090710
  Receipt Date: 20090304
  Transmission Date: 20100115
  Serious: Yes (Hospitalization)
  Sender: FDA-Public Use
  Company Number: B0583003A

PATIENT
  Age: 51 Year
  Sex: Male
  Weight: 119 kg

DRUGS (6)
  1. OMACOR [Suspect]
     Dosage: 1000MG PER DAY
     Route: 048
     Dates: start: 20040623, end: 20050411
  2. MARCUMAR [Concomitant]
  3. NORVASC [Concomitant]
  4. BELOC ZOK [Concomitant]
  5. SORTIS [Concomitant]
  6. DELIX PLUS [Concomitant]

REACTIONS (4)
  - GASTROINTESTINAL HAEMORRHAGE [None]
  - HAEMOGLOBIN DECREASED [None]
  - HAEMORRHAGIC ANAEMIA [None]
  - INTRAVENTRICULAR HAEMORRHAGE [None]
